FAERS Safety Report 5167441-9 (Version None)
Quarter: 2006Q4

REPORT INFORMATION
  Report Type: 
  Country: None (occurrence: None)
  Receive Date: 20061130
  Receipt Date: 20061120
  Transmission Date: 20070319
  Serious: Yes (Hospitalization)
  Sender: FDA-Public Use
  Company Number: 2005-12-1151

PATIENT
  Age: 64 Year
  Sex: Female

DRUGS (2)
  1. PEG-INTRON [Suspect]
     Indication: HEPATITIS C
     Dosage: 100 MCG; QW; SC
     Route: 058
     Dates: start: 20050425, end: 20051107
  2. REBETOL [Suspect]
     Indication: CHRONIC HEPATITIS
     Dosage: 800 MG; QD; PO
     Route: 048
     Dates: start: 20050425, end: 20051113

REACTIONS (10)
  - ALANINE AMINOTRANSFERASE INCREASED [None]
  - ANTINUCLEAR ANTIBODY POSITIVE [None]
  - ASPARTATE AMINOTRANSFERASE INCREASED [None]
  - BLOOD CREATINE PHOSPHOKINASE INCREASED [None]
  - GRIP STRENGTH DECREASED [None]
  - MOVEMENT DISORDER [None]
  - MUSCLE ATROPHY [None]
  - MUSCLE NECROSIS [None]
  - PAIN IN EXTREMITY [None]
  - POLYMYOSITIS [None]
